FAERS Safety Report 11911580 (Version 2)
Quarter: 2016Q1

REPORT INFORMATION
  Report Type: Report from Study
  Country: CO (occurrence: CO)
  Receive Date: 20160112
  Receipt Date: 20160126
  Transmission Date: 20160526
  Serious: Yes (Death, Hospitalization)
  Sender: FDA-Public Use
  Company Number: PHHY2015CO153647

PATIENT
  Age: 23 Year
  Sex: Male

DRUGS (2)
  1. TASIGNA [Suspect]
     Active Substance: NILOTINIB
     Indication: CHRONIC MYELOID LEUKAEMIA
     Dosage: 400 MG, BID
     Route: 048
  2. TASIGNA [Suspect]
     Active Substance: NILOTINIB
     Dosage: 200 MG, UNK
     Route: 048
     Dates: start: 20151118

REACTIONS (4)
  - Respiratory tract infection bacterial [Unknown]
  - Respiratory failure [Fatal]
  - Pyrexia [Unknown]
  - Asphyxia [Unknown]

NARRATIVE: CASE EVENT DATE: 20160101
